FAERS Safety Report 9191109 (Version 1)
Quarter: 2013Q1

REPORT INFORMATION
  Report Type: Spontaneous
  Country: CA (occurrence: CA)
  Receive Date: 20130326
  Receipt Date: 20130326
  Transmission Date: 20140127
  Serious: Yes (Death, Other)
  Sender: FDA-Public Use
  Company Number: CA-INCYTE CORPORATION-2013IN000211

PATIENT
  Age: 70 Year
  Sex: Male

DRUGS (2)
  1. JAKAVI [Suspect]
     Indication: MYELOFIBROSIS
     Dosage: UNK, UNK, UNK
     Route: 048
     Dates: start: 20121219, end: 20130104
  2. CHEMOTHERAPEUTICS [Concomitant]

REACTIONS (2)
  - Death [Fatal]
  - Platelet count decreased [Unknown]
